FAERS Safety Report 9522014 (Version 1)
Quarter: 2013Q3

REPORT INFORMATION
  Report Type: Spontaneous
  Country: GB (occurrence: GB)
  Receive Date: 20130913
  Receipt Date: 20130913
  Transmission Date: 20140515
  Serious: Yes (Hospitalization, Other)
  Sender: FDA-Public Use
  Company Number: GB-RANBAXY-2013R1-72831

PATIENT
  Age: 92 Year
  Sex: Female

DRUGS (4)
  1. AMOXICILLIN [Suspect]
     Indication: LOWER RESPIRATORY TRACT INFECTION
     Dosage: 250 MG, TID
     Route: 048
     Dates: start: 20120627, end: 20120703
  2. DOMPERIDONE [Concomitant]
     Indication: PRODUCT USED FOR UNKNOWN INDICATION
     Dosage: 10 MG, TID
     Route: 065
  3. NITRAZEPAM [Concomitant]
     Indication: PRODUCT USED FOR UNKNOWN INDICATION
     Dosage: UNK, PRN
     Route: 065
  4. SENNA EXTRACT [Concomitant]
     Indication: PRODUCT USED FOR UNKNOWN INDICATION
     Dosage: UNK
     Route: 065

REACTIONS (1)
  - Treatment failure [Unknown]
